FAERS Safety Report 11894707 (Version 3)
Quarter: 2018Q4

REPORT INFORMATION
  Report Type: Spontaneous
  Country: DE (occurrence: DE)
  Receive Date: 20160107
  Receipt Date: 20181002
  Transmission Date: 20190204
  Serious: Yes (Hospitalization, Other)
  Sender: FDA-Public Use
  Company Number: DE-NOVOPROD-475263

PATIENT
  Age: 15 Year
  Sex: Female

DRUGS (2)
  1. NOVONORM [Suspect]
     Active Substance: REPAGLINIDE
     Indication: MONOGENIC DIABETES
     Dosage: 0.5 MG, SINGLE
     Route: 065
     Dates: start: 20090706
  2. NOVONORM [Suspect]
     Active Substance: REPAGLINIDE
     Indication: SUICIDE ATTEMPT
     Dosage: 10.5 MG, SINGLE (21 TABLETS, 0.5 MG EACH)
     Route: 065

REACTIONS (3)
  - Intentional overdose [Unknown]
  - Suicide attempt [Unknown]
  - Hypoglycaemia [Recovered/Resolved]

NARRATIVE: CASE EVENT DATE: 20090706
